FAERS Safety Report 7770597-2 (Version None)
Quarter: 2011Q3

REPORT INFORMATION
  Report Type: 
  Country: None (occurrence: None)
  Receive Date: 20110922
  Receipt Date: 20110919
  Transmission Date: 20111222
  Serious: Yes (Death, Hospitalization)
  Sender: FDA-Public Use
  Company Number: PHHY2011AR83321

PATIENT
  Sex: Male

DRUGS (3)
  1. TIOTROPIUM [Concomitant]
  2. ONBREZ [Suspect]
     Indication: CHRONIC OBSTRUCTIVE PULMONARY DISEASE
     Dosage: 300 UG, QD
     Dates: start: 20110101
  3. ONBREZ [Suspect]
     Indication: EMPHYSEMA

REACTIONS (3)
  - DEATH [None]
  - CARDIAC FAILURE [None]
  - CARDIOPULMONARY FAILURE [None]
